FAERS Safety Report 17327928 (Version 1)
Quarter: 2020Q1

REPORT INFORMATION
  Report Type: Spontaneous
  Country: US (occurrence: US)
  Receive Date: 20200127
  Receipt Date: 20200127
  Transmission Date: 20200409
  Serious: No
  Sender: FDA-Public Use
  Company Number: US-ABBVIE-20K-163-3218233-00

PATIENT
  Age: 0 Year
  Sex: Female
  Weight: 3.63 kg

DRUGS (1)
  1. MAVYRET [Suspect]
     Active Substance: GLECAPREVIR\PIBRENTASVIR
     Indication: MATERNAL EXPOSURE TIMING UNSPECIFIED
     Route: 064

REACTIONS (3)
  - Vomiting [Unknown]
  - Foetal exposure during pregnancy [Unknown]
  - Weight gain poor [Unknown]

NARRATIVE: CASE EVENT DATE: 201907
